FAERS Safety Report 22000594 (Version 1)
Quarter: 2023Q1

REPORT INFORMATION
  Report Type: Spontaneous
  Country: US (occurrence: US)
  Receive Date: 20230216
  Receipt Date: 20230216
  Transmission Date: 20230417
  Serious: Yes (Other)
  Sender: FDA-Public Use
  Company Number: US-002147023-NVSC2023US031936

PATIENT
  Age: 60 Year
  Sex: Male

DRUGS (24)
  1. TIGECYCLINE [Suspect]
     Active Substance: TIGECYCLINE
     Indication: Mycobacterium chelonae infection
     Dosage: UNK
     Route: 065
  2. TIGECYCLINE [Suspect]
     Active Substance: TIGECYCLINE
     Indication: Pneumonia
  3. TIGECYCLINE [Suspect]
     Active Substance: TIGECYCLINE
     Indication: Osteomyelitis
  4. CIPROFLOXACIN [Suspect]
     Active Substance: CIPROFLOXACIN
     Indication: Mycobacterium chelonae infection
     Dosage: UNK
     Route: 065
  5. CIPROFLOXACIN [Suspect]
     Active Substance: CIPROFLOXACIN
     Indication: Pneumonia
  6. CIPROFLOXACIN [Suspect]
     Active Substance: CIPROFLOXACIN
     Indication: Osteomyelitis
  7. AZITHROMYCIN [Suspect]
     Active Substance: AZITHROMYCIN
     Indication: Mycobacterium chelonae infection
     Dosage: UNK
     Route: 065
  8. AZITHROMYCIN [Suspect]
     Active Substance: AZITHROMYCIN
     Indication: Pneumonia
  9. AZITHROMYCIN [Suspect]
     Active Substance: AZITHROMYCIN
     Indication: Osteomyelitis
  10. OMADACYCLINE [Suspect]
     Active Substance: OMADACYCLINE
     Indication: Mycobacterium chelonae infection
     Dosage: UNK
     Route: 065
  11. OMADACYCLINE [Suspect]
     Active Substance: OMADACYCLINE
     Indication: Pneumonia
  12. OMADACYCLINE [Suspect]
     Active Substance: OMADACYCLINE
     Indication: Osteomyelitis
  13. IMIPENEM [Suspect]
     Active Substance: IMIPENEM
     Indication: Mycobacterium chelonae infection
     Dosage: UNK
     Route: 065
  14. IMIPENEM [Suspect]
     Active Substance: IMIPENEM
     Indication: Pneumonia
  15. IMIPENEM [Suspect]
     Active Substance: IMIPENEM
     Indication: Osteomyelitis
  16. TEDIZOLID [Suspect]
     Active Substance: TEDIZOLID
     Indication: Mycobacterium chelonae infection
     Route: 065
  17. TEDIZOLID [Suspect]
     Active Substance: TEDIZOLID
     Indication: Pneumonia
  18. TEDIZOLID [Suspect]
     Active Substance: TEDIZOLID
     Indication: Osteomyelitis
  19. CEFOXITIN [Suspect]
     Active Substance: CEFOXITIN SODIUM
     Indication: Mycobacterium chelonae infection
     Dosage: UNK
     Route: 065
  20. CEFOXITIN [Suspect]
     Active Substance: CEFOXITIN SODIUM
     Indication: Pneumonia
  21. CEFOXITIN [Suspect]
     Active Substance: CEFOXITIN SODIUM
     Indication: Osteomyelitis
  22. AMIKACIN [Suspect]
     Active Substance: AMIKACIN
     Indication: Mycobacterium chelonae infection
     Dosage: UNK
  23. AMIKACIN [Suspect]
     Active Substance: AMIKACIN
     Indication: Pneumonia
     Dosage: UNK
     Route: 042
  24. AMIKACIN [Suspect]
     Active Substance: AMIKACIN
     Indication: Osteomyelitis

REACTIONS (4)
  - Thrombocytopenia [Unknown]
  - Rash [Unknown]
  - Vomiting [Unknown]
  - Nausea [Unknown]
